FAERS Safety Report 12920833 (Version 1)
Quarter: 2016Q4

REPORT INFORMATION
  Report Type: Spontaneous
  Country: US (occurrence: US)
  Receive Date: 20161107
  Receipt Date: 20161107
  Transmission Date: 20170207
  Serious: Yes (Other)
  Sender: FDA-Public Use
  Company Number: None

PATIENT
  Age: 53 Year
  Sex: Male
  Weight: 99 kg

DRUGS (6)
  1. TESTIM [Concomitant]
     Active Substance: TESTOSTERONE
  2. LEVITHYROXINE [Concomitant]
  3. VITAMIN D [Concomitant]
     Active Substance: CHOLECALCIFEROL
  4. FISH OIL [Concomitant]
     Active Substance: FISH OIL
  5. PROBIOTIC [Concomitant]
     Active Substance: PROBIOTICS NOS
  6. ACTEMRA [Suspect]
     Active Substance: TOCILIZUMAB
     Indication: RHEUMATOID ARTHRITIS
     Dosage: OTHER FREQUENCY:4 WEEKS;OTHER ROUTE:INFUSION?
     Dates: start: 20161102

REACTIONS (14)
  - Inflammation [None]
  - Pain [None]
  - Oropharyngeal pain [None]
  - Cough [None]
  - Swelling [None]
  - Headache [None]
  - Infusion related reaction [None]
  - Decreased appetite [None]
  - Joint swelling [None]
  - Pruritus [None]
  - Arthralgia [None]
  - Chest pain [None]
  - Formication [None]
  - Nausea [None]

NARRATIVE: CASE EVENT DATE: 20161102
